FAERS Safety Report 5147651-7 (Version None)
Quarter: 2006Q4

REPORT INFORMATION
  Report Type: 
  Country: None (occurrence: None)
  Receive Date: 20060915
  Receipt Date: 20060525
  Transmission Date: 20070319
  Serious: Yes (Hospitalization)
  Sender: FDA-Public Use
  Company Number: S06-USA-02033-01

PATIENT
  Age: 15 Year
  Sex: Female

DRUGS (7)
  1. CELEXA [Suspect]
     Indication: ANXIETY
     Dosage: SEE IMAGE
     Route: 048
     Dates: start: 20020201, end: 20030901
  2. CELEXA [Suspect]
     Indication: DEPRESSION
     Dosage: SEE IMAGE
     Route: 048
     Dates: start: 20020201, end: 20030901
  3. CELEXA [Suspect]
     Indication: ANXIETY
     Dosage: SEE IMAGE
     Route: 048
     Dates: start: 20030901, end: 20050301
  4. CELEXA [Suspect]
     Indication: DEPRESSION
     Dosage: SEE IMAGE
     Route: 048
     Dates: start: 20030901, end: 20050301
  5. CELEXA [Suspect]
     Indication: ANXIETY
     Dosage: SEE IMAGE
     Route: 048
     Dates: start: 20050301, end: 20060507
  6. CELEXA [Suspect]
     Indication: DEPRESSION
     Dosage: SEE IMAGE
     Route: 048
     Dates: start: 20050301, end: 20060507
  7. WELLBUTRIN [Suspect]
     Indication: ATTENTION DEFICIT/HYPERACTIVITY DISORDER
     Dosage: 300 MG QD PO
     Route: 048
     Dates: end: 20060507

REACTIONS (7)
  - CONVULSION [None]
  - DELIRIUM [None]
  - FLAT AFFECT [None]
  - INTENTIONAL OVERDOSE [None]
  - IRRITABILITY [None]
  - SUICIDAL IDEATION [None]
  - SUICIDE ATTEMPT [None]
